FAERS Safety Report 9170576 (Version 1)
Quarter: 2013Q1

REPORT INFORMATION
  Report Type: Spontaneous
  Country: CN (occurrence: None)
  Receive Date: 20130312
  Receipt Date: 20130312
  Transmission Date: 20140127
  Serious: Yes (Hospitalization)
  Sender: FDA-Public Use
  Company Number: IMP_06584_2013

PATIENT
  Age: 55 Year
  Sex: Male

DRUGS (2)
  1. BACLOFEN (BACLOFEN) (BACLOFEN) [Suspect]
  2. IRBESARTAN [Suspect]

REACTIONS (5)
  - Intentional overdose [None]
  - Blood pressure increased [None]
  - Hypotonia [None]
  - Hyporeflexia [None]
  - Leukocytosis [None]
